FAERS Safety Report 14828369 (Version 5)
Quarter: 2018Q3

REPORT INFORMATION
  Report Type: Spontaneous
  Country: US (occurrence: US)
  Receive Date: 20180430
  Receipt Date: 20180927
  Transmission Date: 20181010
  Serious: Yes (Hospitalization, Other)
  Sender: FDA-Public Use
  Company Number: US-CLOVIS ONCOLOGY-CLO-2018-000402

PATIENT
  Age: 70 Year
  Sex: Female

DRUGS (6)
  1. RUBRACA [Suspect]
     Active Substance: RUCAPARIB CAMSYLATE
     Dosage: UNKNOWN DOSE
     Dates: start: 2018, end: 2018
  2. RUBRACA [Suspect]
     Active Substance: RUCAPARIB CAMSYLATE
     Dosage: UNK
  3. RUBRACA [Suspect]
     Active Substance: RUCAPARIB CAMSYLATE
     Indication: OVARIAN CANCER
     Dosage: 600 MG, BID
     Route: 048
     Dates: start: 20180402, end: 20180410
  4. RUBRACA [Suspect]
     Active Substance: RUCAPARIB CAMSYLATE
     Dosage: UNKNOWN DOSE
     Dates: start: 2018, end: 20180721
  5. RUBRACA [Suspect]
     Active Substance: RUCAPARIB CAMSYLATE
     Dosage: 600 MG, BID
     Route: 048
     Dates: start: 20180515, end: 20180710
  6. RUBRACA [Suspect]
     Active Substance: RUCAPARIB CAMSYLATE
     Dosage: 600 MG, BID
     Route: 048
     Dates: start: 20180308, end: 20180409

REACTIONS (5)
  - Oedema peripheral [Not Recovered/Not Resolved]
  - Cardiac failure congestive [Recovered/Resolved]
  - Pneumonia [Recovered/Resolved]
  - Atrial fibrillation [Unknown]
  - Fatigue [Unknown]

NARRATIVE: CASE EVENT DATE: 2018
